FAERS Safety Report 14482634 (Version 1)
Quarter: 2018Q1

REPORT INFORMATION
  Report Type: Spontaneous
  Country: US (occurrence: US)
  Receive Date: 20180203
  Receipt Date: 20180203
  Transmission Date: 20180509
  Serious: Yes (Death)
  Sender: FDA-Public Use
  Company Number: US-ROCHE-2067056

PATIENT
  Age: 57 Year
  Sex: Male

DRUGS (7)
  1. GLYBURIDE. [Concomitant]
     Active Substance: GLYBURIDE
     Route: 065
     Dates: start: 20160107
  2. ASPIRIN. [Concomitant]
     Active Substance: ASPIRIN
     Dosage: LOW
     Route: 065
     Dates: start: 20160107
  3. ESBRIET [Suspect]
     Active Substance: PIRFENIDONE
     Indication: IDIOPATHIC PULMONARY FIBROSIS
     Route: 048
     Dates: start: 20160107, end: 20171229
  4. FELODIPINEEXTENDED-RELEASE TABLETS [Concomitant]
     Active Substance: FELODIPINE
     Route: 065
     Dates: start: 20160107
  5. SIMVASTATIN. [Concomitant]
     Active Substance: SIMVASTATIN
     Route: 065
     Dates: start: 20160107
  6. NEXIUM [Concomitant]
     Active Substance: ESOMEPRAZOLE MAGNESIUM
     Route: 065
     Dates: start: 20160107
  7. HYDROCHLOROTHIAZIDE. [Concomitant]
     Active Substance: HYDROCHLOROTHIAZIDE
     Route: 065
     Dates: start: 20160107

REACTIONS (1)
  - Death [Fatal]

NARRATIVE: CASE EVENT DATE: 20171229
